FAERS Safety Report 22967312 (Version 7)
Quarter: 2024Q4

REPORT INFORMATION
  Report Type: Spontaneous
  Country: US (occurrence: US)
  Receive Date: 20230921
  Receipt Date: 20241105
  Transmission Date: 20250114
  Serious: Yes (Hospitalization)
  Sender: PFIZER
  Company Number: US-PFIZER INC-2020427406

PATIENT
  Age: 86 Year
  Sex: Male

DRUGS (3)
  1. EUCRISA [Suspect]
     Active Substance: CRISABOROLE
     Dosage: APPLY TWICE DAY TO GENITALIA/APPLY TO LARGE SURFACE AREA TWICE A DAY
     Route: 061
  2. EUCRISA [Suspect]
     Active Substance: CRISABOROLE
     Dosage: APPLY TO AFFECTED AREAS DAILY
     Route: 061
  3. EUCRISA [Suspect]
     Active Substance: CRISABOROLE
     Dosage: APPLY TO TRUNK AND GROIN (LARGE BODY SURFACE ARE)
     Route: 061

REACTIONS (3)
  - Illness [Unknown]
  - Hypotension [Unknown]
  - Hypertension [Unknown]
